FAERS Safety Report 12813630 (Version 1)
Quarter: 2016Q4

REPORT INFORMATION
  Report Type: Spontaneous
  Country: US (occurrence: US)
  Receive Date: 20161005
  Receipt Date: 20161005
  Transmission Date: 20170207
  Serious: No
  Sender: FDA-Public Use
  Company Number: US-SA-2015SA148393

PATIENT
  Age: 59 Year
  Sex: Female
  Weight: 52.1 kg

DRUGS (17)
  1. IRON [Concomitant]
     Active Substance: IRON
     Indication: RED BLOOD CELL COUNT ABNORMAL
  2. VITAMIN E [Concomitant]
     Active Substance: .ALPHA.-TOCOPHEROL
     Indication: ANTIOXIDANT THERAPY
  3. LEVOTHYROXINE. [Concomitant]
     Active Substance: LEVOTHYROXINE
     Indication: HYPOTHYROIDISM
     Dates: start: 2007
  4. ARAVA [Suspect]
     Active Substance: LEFLUNOMIDE
     Indication: MYALGIA
     Route: 065
     Dates: end: 20150616
  5. MAGNESIUM [Concomitant]
     Active Substance: MAGNESIUM
     Indication: NUTRITIONAL SUPPLEMENTATION
  6. PANTOTHENIC ACID [Concomitant]
     Active Substance: PANTOTHENIC ACID
  7. VITAMIN E [Concomitant]
     Active Substance: .ALPHA.-TOCOPHEROL
     Indication: PROPHYLAXIS
  8. ARAVA [Suspect]
     Active Substance: LEFLUNOMIDE
     Indication: MYALGIA
     Route: 065
     Dates: start: 20150615
  9. CALCIUM CITRATE [Concomitant]
     Active Substance: CALCIUM CITRATE
     Indication: PROPHYLAXIS
  10. PANTHENOL/RETINOL/THIAMINE HYDROCHLORIDE/ASCORBIC ACID/ERGOCALCIFEROL/FOLIC ACID/RIBOFLAVIN/NICOTINA [Concomitant]
     Indication: NUTRITIONAL SUPPLEMENTATION
  11. BIOTIN [Concomitant]
     Active Substance: BIOTIN
     Indication: NUTRITIONAL SUPPLEMENTATION
  12. ASPIRIN. [Concomitant]
     Active Substance: ASPIRIN
     Indication: ANTIINFLAMMATORY THERAPY
  13. VITAMIN E [Concomitant]
     Active Substance: .ALPHA.-TOCOPHEROL
     Indication: NUTRITIONAL SUPPLEMENTATION
  14. PREDNISONE. [Concomitant]
     Active Substance: PREDNISONE
     Indication: MYALGIA
     Dosage: DOSE: VARIES WITH TAPERS AND WAS NOW 10 MG/DAY
     Dates: start: 2014
  15. ASPIRIN. [Concomitant]
     Active Substance: ASPIRIN
     Indication: ANTICOAGULANT THERAPY
  16. FISH OIL [Concomitant]
     Active Substance: FISH OIL
     Indication: ANTIOXIDANT THERAPY
  17. COENZYME Q10 [Concomitant]
     Active Substance: UBIDECARENONE
     Indication: ANTIOXIDANT THERAPY

REACTIONS (4)
  - Pain [Not Recovered/Not Resolved]
  - Back pain [Unknown]
  - Alopecia [Unknown]
  - Chest pain [Unknown]

NARRATIVE: CASE EVENT DATE: 20150617
